FAERS Safety Report 18926467 (Version 1)
Quarter: 2021Q1

REPORT INFORMATION
  Report Type: Spontaneous
  Country: GB (occurrence: GB)
  Receive Date: 20210223
  Receipt Date: 20210223
  Transmission Date: 20210420
  Serious: Yes (Congenital Anomaly, Other)
  Sender: FDA-Public Use
  Company Number: GB-SA-2021SA051676

PATIENT
  Sex: Male

DRUGS (1)
  1. CLOMID [Suspect]
     Active Substance: CLOMIPHENE CITRATE
     Dosage: 50 MG (1 SHORT COURSE)
     Route: 062

REACTIONS (10)
  - Pulmonary artery stenosis [Unknown]
  - Developmental delay [Unknown]
  - Constipation [Unknown]
  - Congenital central nervous system anomaly [Unknown]
  - Nephrolithiasis [Unknown]
  - Pyelocaliectasis [Unknown]
  - Grey matter heterotopia [Unknown]
  - Cytogenetic abnormality [Unknown]
  - Foetal exposure during pregnancy [Unknown]
  - Congenital anomaly [Unknown]

NARRATIVE: CASE EVENT DATE: 20150928
